FAERS Safety Report 8660831 (Version 4)
Quarter: 2013Q3

REPORT INFORMATION
  Report Type: Report from Study
  Country: KR (occurrence: KR)
  Receive Date: 20120711
  Receipt Date: 20130903
  Transmission Date: 20140515
  Serious: Yes (Hospitalization)
  Sender: FDA-Public Use
  Company Number: PHHO2012KR009964

PATIENT
  Age: 58 Year
  Sex: Male
  Weight: 81 kg

DRUGS (22)
  1. ATORVASTATIN CALCIUM [Suspect]
     Indication: HYPERLIPIDAEMIA
     Dosage: 10 MG, QD
     Route: 048
     Dates: start: 20100604
  2. PLACEBO [Suspect]
     Indication: CARDIOVASCULAR DISORDER
     Route: 048
     Dates: start: 20090601, end: 20111226
  3. SILODOSIN [Suspect]
     Indication: BENIGN PROSTATIC HYPERPLASIA
     Dosage: 4 MG, BID
     Route: 048
     Dates: start: 20110617, end: 20120625
  4. AMARYL [Suspect]
     Indication: TYPE 2 DIABETES MELLITUS
     Dosage: 2 MG, QD
     Route: 048
     Dates: start: 20110302
  5. METFORMIN HYDROCHLORIDE [Suspect]
     Indication: TYPE 2 DIABETES MELLITUS
     Dosage: 500 MG, QD
     Route: 048
     Dates: start: 20030107
  6. ALLOPURINOL [Suspect]
     Indication: RENAL FAILURE CHRONIC
     Dosage: 100 MG, QD
     Route: 048
     Dates: start: 20110105
  7. CHOLINE ALFOSCERATE [Concomitant]
     Indication: PROPHYLAXIS
     Dosage: 400 MG, BID
     Route: 048
     Dates: start: 20080325, end: 20120625
  8. CHOLINE ALFOSCERATE [Concomitant]
     Dosage: 400 MG, BID
     Route: 048
  9. ROPINIROLE [Concomitant]
     Indication: MUSCLE SPASMS
     Dosage: 0.25 MG, QD
     Route: 048
     Dates: start: 20110411, end: 20120625
  10. ROPINIROLE [Concomitant]
     Dosage: 0.25 MG, QD
     Route: 048
  11. FINASTERIDE [Concomitant]
     Indication: BENIGN PROSTATIC HYPERPLASIA
     Dosage: 5 MG, QD
     Route: 048
     Dates: start: 20111122, end: 20120625
  12. ASPIRIN ENTERIC COATED [Concomitant]
     Indication: HYPERTENSION
     Dosage: 100 MG, QD
     Route: 048
     Dates: start: 20030107, end: 20120620
  13. ASPIRIN ENTERIC COATED [Concomitant]
     Dosage: 100 MG, QD
     Route: 048
  14. CILOSTAZOL [Concomitant]
     Dosage: 100 MG, BID
     Route: 048
     Dates: start: 20030709, end: 20120620
  15. CILOSTAZOL [Concomitant]
     Dosage: 100 MG, BID
     Route: 048
  16. PERINDOPRIL [Concomitant]
     Indication: HYPERTENSION
     Dosage: 4 MG, QD
     Route: 048
     Dates: start: 20110504
  17. GLIMEPIRIDE [Concomitant]
     Indication: TYPE 2 DIABETES MELLITUS
     Dosage: 2 MG, QD
     Route: 048
     Dates: start: 20110302
  18. PREGABALIN [Concomitant]
     Indication: MUSCLE SPASMS
     Dosage: 75 MG, BID
     Route: 048
     Dates: start: 20120502
  19. EFONIDIPINE HYDROCHLORIDE [Concomitant]
     Indication: HYPERTENSION
     Dosage: 10 MG, QD
     Route: 048
     Dates: start: 20120214, end: 20121018
  20. INSULIN DETEMIR [Concomitant]
     Indication: TYPE 2 DIABETES MELLITUS
     Dosage: 10 IU, QD
     Route: 058
     Dates: start: 20111207
  21. TAMSULOSIN HYDROCHLORIDE [Concomitant]
     Indication: BENIGN PROSTATIC HYPERPLASIA
     Dosage: 0.2 MG, QD
     Route: 048
     Dates: start: 20120703
  22. SULODEXIDE [Concomitant]
     Indication: HYPERLIPIDAEMIA
     Dosage: 250 LSU, BID
     Route: 048
     Dates: start: 20120502

REACTIONS (4)
  - Functional gastrointestinal disorder [Recovering/Resolving]
  - Peripheral arterial occlusive disease [Recovered/Resolved]
  - Coronary artery disease [Not Recovered/Not Resolved]
  - Coronary artery stenosis [Not Recovered/Not Resolved]
